FAERS Safety Report 7517905-5 (Version None)
Quarter: 2011Q2

REPORT INFORMATION
  Report Type: 
  Country: None (occurrence: None)
  Receive Date: 20110527
  Receipt Date: 20110527
  Transmission Date: 20111010
  Serious: Yes (Other)
  Sender: FDA-Public Use
  Company Number: None

PATIENT
  Age: 52 Year
  Sex: Female
  Weight: 63.5036 kg

DRUGS (2)
  1. SINGULAIR [Suspect]
     Indication: MULTIPLE ALLERGIES
     Dosage: 1 DAILY PO
     Route: 048
     Dates: start: 20110101, end: 20110525
  2. SINGULAIR [Suspect]
     Indication: ASTHMA
     Dosage: 1 DAILY PO
     Route: 048
     Dates: start: 20110101, end: 20110525

REACTIONS (6)
  - DEPRESSED MOOD [None]
  - BLOOD PRESSURE DIASTOLIC INCREASED [None]
  - HEADACHE [None]
  - SLEEP DISORDER [None]
  - EAR PAIN [None]
  - FEELING ABNORMAL [None]
